FAERS Safety Report 4527275-2 (Version None)
Quarter: 2004Q4

REPORT INFORMATION
  Report Type: 
  Country: None (occurrence: None)
  Receive Date: 20041130
  Receipt Date: 20040908
  Transmission Date: 20050328
  Serious: No
  Sender: FDA-Public Use
  Company Number: FABR-10767

PATIENT
  Age: 18 Year
  Sex: Male
  Weight: 77.5 kg

DRUGS (1)
  1. FABRAZYME [Suspect]
     Indication: FABRY'S DISEASE
     Dosage: 77.5 MG Q2WKS IV
     Route: 042
     Dates: start: 20030101

REACTIONS (1)
  - CATHETER RELATED COMPLICATION [None]
